FAERS Safety Report 5365617-9 (Version None)
Quarter: 2007Q2

REPORT INFORMATION
  Report Type: 
  Country: None (occurrence: None)
  Receive Date: 20070621
  Receipt Date: 20070608
  Transmission Date: 20071010
  Serious: Yes (Hospitalization, Other)
  Sender: FDA-Public Use
  Company Number: US-ELI_LILLY_AND_COMPANY-US200706002053

PATIENT
  Sex: Female

DRUGS (6)
  1. EVISTA [Suspect]
     Indication: OSTEOPOROSIS
     Dosage: 60 MG, UNK
     Route: 048
  2. PREMPRO [Concomitant]
     Indication: HORMONE REPLACEMENT THERAPY
     Dosage: 0.625 MG, DAILY (1/D)
  3. PREMPRO [Concomitant]
     Dosage: 2.5 MG, DAILY (1/D)
  4. ATACAND [Concomitant]
     Indication: BLOOD PRESSURE
     Dosage: 4 MG, UNK
  5. DIGOXIN [Concomitant]
     Indication: HEART RATE IRREGULAR
     Dosage: 0.125 MG, UNK
  6. VITAMIN CAP [Concomitant]
     Indication: SUPPLEMENTATION THERAPY

REACTIONS (3)
  - ABDOMINAL DISCOMFORT [None]
  - CATARACT [None]
  - WEIGHT DECREASED [None]
